FAERS Safety Report 9334344 (Version 1)
Quarter: 2013Q2

REPORT INFORMATION
  Report Type: Spontaneous
  Country: US (occurrence: US)
  Receive Date: 20130606
  Receipt Date: 20130606
  Transmission Date: 20140414
  Serious: No
  Sender: FDA-Public Use
  Company Number: US-AMGEN-USASP2013021433

PATIENT
  Age: 60 Year
  Sex: Female
  Weight: 74.83 kg

DRUGS (2)
  1. PROLIA [Suspect]
     Indication: OSTEOPENIA
     Dosage: 60 MG, UNK
  2. LEVOTHYROXINE [Concomitant]
     Indication: HYPOTHYROIDISM

REACTIONS (3)
  - Pelvic pain [Recovered/Resolved]
  - Arthralgia [Recovered/Resolved]
  - Pain in extremity [Recovered/Resolved]
